FAERS Safety Report 22272571 (Version 2)
Quarter: 2023Q2

REPORT INFORMATION
  Report Type: Spontaneous
  Country: GB (occurrence: GB)
  Receive Date: 20230502
  Receipt Date: 20230509
  Transmission Date: 20230721
  Serious: Yes (Other)
  Sender: FDA-Public Use
  Company Number: GB-009507513-2304GBR009987

PATIENT
  Sex: Male

DRUGS (5)
  1. KEYTRUDA [Suspect]
     Active Substance: PEMBROLIZUMAB
     Indication: Malignant melanoma stage III
     Dosage: INFUSION 400MG IN 100ML
     Route: 042
     Dates: start: 20220928, end: 20220928
  2. KEYTRUDA [Suspect]
     Active Substance: PEMBROLIZUMAB
     Dosage: INFUSION 400MG IN 100ML
     Route: 042
     Dates: start: 20221110, end: 20221110
  3. KEYTRUDA [Suspect]
     Active Substance: PEMBROLIZUMAB
     Dosage: INFUSION 400MG IN 100ML
     Route: 042
     Dates: start: 20221222, end: 20221222
  4. KEYTRUDA [Suspect]
     Active Substance: PEMBROLIZUMAB
     Dosage: INFUSION 400MG IN 100ML
     Route: 042
     Dates: start: 20230202, end: 20230202
  5. KEYTRUDA [Suspect]
     Active Substance: PEMBROLIZUMAB
     Dosage: INFUSION 400MG IN 100ML
     Route: 042
     Dates: start: 20230316, end: 20230316

REACTIONS (3)
  - Renal injury [Unknown]
  - Blood creatinine increased [Unknown]
  - Inappropriate schedule of product administration [Unknown]

NARRATIVE: CASE EVENT DATE: 20221110
